FAERS Safety Report 16646967 (Version 2)
Quarter: 2019Q3

REPORT INFORMATION
  Report Type: Spontaneous
  Country: US (occurrence: US)
  Receive Date: 20190730
  Receipt Date: 20190730
  Transmission Date: 20191004
  Serious: Yes (Hospitalization)
  Sender: FDA-Public Use
  Company Number: PHHY2019US171181

PATIENT
  Age: 52 Year
  Sex: Female

DRUGS (2)
  1. ONDANSETRON [Suspect]
     Active Substance: ONDANSETRON
     Indication: VENOM POISONING
     Dosage: UNK
     Route: 065
  2. LORAZEPAM. [Suspect]
     Active Substance: LORAZEPAM
     Indication: VENOM POISONING
     Route: 065

REACTIONS (23)
  - Hypoaesthesia [Recovered/Resolved]
  - Cough [Recovered/Resolved]
  - Hypokinesia [Recovered/Resolved]
  - Product use in unapproved indication [Unknown]
  - Dysphagia [Recovered/Resolved]
  - Abnormal sensation in eye [Recovered/Resolved]
  - Hypoacusis [Recovered/Resolved]
  - Muscle twitching [Recovering/Resolving]
  - Pain [Recovered/Resolved]
  - Paraesthesia [Recovered/Resolved]
  - Hyposmia [Recovered/Resolved]
  - Sensory disturbance [Recovered/Resolved]
  - Eye movement disorder [Recovered/Resolved]
  - Venom poisoning [Recovered/Resolved]
  - Nausea [Recovered/Resolved]
  - Vision blurred [Recovered/Resolved]
  - Myalgia [Recovering/Resolving]
  - Condition aggravated [Recovered/Resolved]
  - Taste disorder [Recovered/Resolved]
  - Muscle contractions involuntary [Recovered/Resolved]
  - Movement disorder [Recovered/Resolved]
  - Tremor [Recovered/Resolved]
  - Erythema [Recovered/Resolved]
